FAERS Safety Report 9979111 (Version 1)
Quarter: 2014Q1

REPORT INFORMATION
  Report Type: Report from Study
  Country: US (occurrence: US)
  Receive Date: 20140306
  Receipt Date: 20140306
  Transmission Date: 20141002
  Serious: No
  Sender: FDA-Public Use
  Company Number: US-ABBVIE-13P-163-1173792-00

PATIENT
  Age: 58 Year
  Sex: Female

DRUGS (4)
  1. HUMIRA [Suspect]
     Indication: PSORIASIS
     Dosage: DAY ONE
     Dates: start: 201310, end: 201310
  2. HUMIRA [Suspect]
     Dosage: ON DAY EIGHT
     Dates: start: 2013, end: 2013
  3. HUMIRA [Suspect]
     Dosage: ON DAY 22
     Dates: start: 2013, end: 2013
  4. HUMIRA [Suspect]
     Dates: start: 2013

REACTIONS (1)
  - Inappropriate schedule of drug administration [Unknown]
